FAERS Safety Report 8618322-7 (Version None)
Quarter: 2012Q3

REPORT INFORMATION
  Report Type: 
  Country: None (occurrence: None)
  Receive Date: 20120824
  Receipt Date: 20120815
  Transmission Date: 20120928
  Serious: Yes (Hospitalization)
  Sender: FDA-Public Use
  Company Number: US-BIOGENIDEC-2012BI027611

PATIENT
  Age: 38 Year
  Sex: Female

DRUGS (5)
  1. AMPYRA [Concomitant]
  2. DETROL [Concomitant]
  3. TYSABRI [Suspect]
     Indication: MULTIPLE SCLEROSIS
     Route: 042
     Dates: start: 20110809
  4. CITALOPRAM HYDROBROMIDE [Concomitant]
  5. CARBAMAZEPIME [Concomitant]

REACTIONS (2)
  - PNEUMONIA [None]
  - URINARY TRACT INFECTION [None]
